FAERS Safety Report 10024742 (Version 3)
Quarter: 2014Q2

REPORT INFORMATION
  Report Type: Spontaneous
  Country: IT (occurrence: None)
  Receive Date: 20140207
  Receipt Date: 20140409
  Transmission Date: 20141212
  Serious: Yes (Life-Threatening)
  Sender: FDA-Public Use
  Company Number: 2014SA002916

PATIENT
  Age: 24 Month
  Sex: Male

DRUGS (4)
  1. MYOZYME [Suspect]
     Indication: GLYCOGEN STORAGE DISEASE TYPE II
     Dosage: 20 MILLIGRAM(S)/KILOGRAM; WEEKLY; INTRAVENOUS (NOT OTHERWISE SPECIFIED)
     Route: 042
     Dates: start: 20110709
  2. OMEPRAZOLE [Concomitant]
  3. PROPRANOLOL HYDROCHLORIDE [Concomitant]
  4. SULFAMETHOXAZOLE/TRIMETHOPRIM [Concomitant]

REACTIONS (6)
  - Hypotonia [None]
  - Condition aggravated [None]
  - Drug effect decreased [None]
  - Respiratory disorder [None]
  - Motor dysfunction [None]
  - Posture abnormal [None]
